FAERS Safety Report 7721699-8 (Version None)
Quarter: 2011Q3

REPORT INFORMATION
  Report Type: 
  Country: None (occurrence: None)
  Receive Date: 20110831
  Receipt Date: 20110822
  Transmission Date: 20111222
  Serious: Yes (Hospitalization)
  Sender: FDA-Public Use
  Company Number: ES-GLAXOSMITHKLINE-B0739567A

PATIENT
  Sex: Female
  Weight: 70.3 kg

DRUGS (2)
  1. VOTRIENT [Suspect]
     Indication: OVARIAN NEOPLASM
     Dosage: 800MG PER DAY
     Route: 065
     Dates: start: 20110211
  2. SANDOSTATIN [Suspect]
     Dosage: 28MG MONTHLY
     Route: 030
     Dates: start: 20060101

REACTIONS (1)
  - DIABETES MELLITUS INADEQUATE CONTROL [None]
